FAERS Safety Report 14269292 (Version 2)
Quarter: 2018Q4

REPORT INFORMATION
  Report Type: Spontaneous
  Country: US (occurrence: US)
  Receive Date: 20171211
  Receipt Date: 20181121
  Transmission Date: 20190204
  Serious: Yes (Other)
  Sender: FDA-Public Use
  Company Number: US-OTSUKA-2017_018898

PATIENT
  Age: 43 Year
  Sex: Female

DRUGS (3)
  1. ABILIFY [Suspect]
     Active Substance: ARIPIPRAZOLE
     Indication: BIPOLAR DISORDER
     Dosage: 5 MG, QD
     Route: 065
     Dates: start: 2006, end: 2009
  2. ABILIFY [Suspect]
     Active Substance: ARIPIPRAZOLE
     Indication: INSOMNIA
     Dosage: UNK
     Route: 065
  3. ABILIFY [Suspect]
     Active Substance: ARIPIPRAZOLE
     Indication: ANXIETY
     Dosage: UNK
     Route: 065

REACTIONS (13)
  - Economic problem [Unknown]
  - Product use in unapproved indication [Unknown]
  - Personality disorder [Unknown]
  - Obsessive-compulsive disorder [Recovered/Resolved]
  - Emotional distress [Unknown]
  - Impulsive behaviour [Recovered/Resolved]
  - Psychosexual disorder [Recovered/Resolved]
  - Mental disorder [Unknown]
  - Affective disorder [Unknown]
  - Suicidal ideation [Recovered/Resolved]
  - Injury [Unknown]
  - Gambling [Recovered/Resolved]
  - Suicide attempt [Recovered/Resolved]
